FAERS Safety Report 19304340 (Version 5)
Quarter: 2021Q3

REPORT INFORMATION
  Report Type: Report from Study
  Country: CN (occurrence: CN)
  Receive Date: 20210525
  Receipt Date: 20210716
  Transmission Date: 20211014
  Serious: Yes (Hospitalization, Other)
  Sender: FDA-Public Use
  Company Number: CN-BAYER-2021-146364

PATIENT
  Age: 58 Year
  Sex: Male
  Weight: 60 kg

DRUGS (2)
  1. LAROTRECTINIB [Suspect]
     Active Substance: LAROTRECTINIB
     Indication: PANCREATIC CARCINOMA STAGE IV
     Dosage: 75 MG, BID
     Dates: start: 20210608, end: 20210628
  2. LAROTRECTINIB [Suspect]
     Active Substance: LAROTRECTINIB
     Indication: PANCREATIC CARCINOMA STAGE IV
     Dosage: 100 MG, BID
     Dates: start: 20210423, end: 20210520

REACTIONS (5)
  - Hepatic function abnormal [Recovering/Resolving]
  - Hepatic function abnormal [Recovered/Resolved]
  - Hepatic function abnormal [Not Recovered/Not Resolved]
  - Hepatic function abnormal [Not Recovered/Not Resolved]
  - Hepatic function abnormal [Recovered/Resolved]

NARRATIVE: CASE EVENT DATE: 20210521
